FAERS Safety Report 16138412 (Version 5)
Quarter: 2023Q4

REPORT INFORMATION
  Report Type: Report from Study
  Country: CA (occurrence: CA)
  Receive Date: 20190330
  Receipt Date: 20231127
  Transmission Date: 20240110
  Serious: Yes (Other)
  Sender: FDA-Public Use
  Company Number: CA-TAKEDA-2019TUS018194

PATIENT
  Age: 34 Year
  Sex: Female

DRUGS (18)
  1. VEDOLIZUMAB [Suspect]
     Active Substance: VEDOLIZUMAB
     Indication: Crohn^s disease
     Dosage: 300 MILLIGRAM
     Route: 042
     Dates: start: 20160720
  2. VEDOLIZUMAB [Suspect]
     Active Substance: VEDOLIZUMAB
     Dosage: 300 MILLIGRAM, Q4WEEKS
     Route: 042
     Dates: start: 20161123
  3. VEDOLIZUMAB [Suspect]
     Active Substance: VEDOLIZUMAB
     Dosage: 300 MILLIGRAM, Q4WEEKS
     Route: 042
  4. VEDOLIZUMAB [Suspect]
     Active Substance: VEDOLIZUMAB
     Dosage: 300 MILLIGRAM, Q4WEEKS
     Route: 042
  5. VEDOLIZUMAB [Suspect]
     Active Substance: VEDOLIZUMAB
     Dosage: 300 MILLIGRAM, Q4WEEKS
     Route: 042
  6. VEDOLIZUMAB [Suspect]
     Active Substance: VEDOLIZUMAB
     Dosage: 300 MILLIGRAM
     Route: 042
     Dates: start: 20231019
  7. PREDNISONE [Concomitant]
     Active Substance: PREDNISONE
     Dosage: UNK
     Route: 048
     Dates: start: 20231010
  8. ZOFRAN [Concomitant]
     Active Substance: ONDANSETRON HYDROCHLORIDE
     Dosage: UNK UNK, QD
     Route: 048
  9. PREVACID [Concomitant]
     Active Substance: LANSOPRAZOLE
     Indication: Gastrointestinal disorder
     Dosage: UNK UNK, QD
     Route: 048
  10. VITAMIN C [Concomitant]
     Active Substance: ASCORBIC ACID
     Dosage: UNK UNK, QD
     Route: 048
  11. FOLIC ACID [Concomitant]
     Active Substance: FOLIC ACID
     Dosage: UNK UNK, QD
     Route: 048
  12. CALCIUM\ERGOCALCIFEROL [Concomitant]
     Active Substance: CALCIUM\ERGOCALCIFEROL
     Dosage: UNK UNK, QD
     Route: 048
  13. GRAVOL [Concomitant]
     Active Substance: DIMENHYDRINATE
     Dosage: 50 MILLIGRAM, Q4HR
     Route: 048
  14. TYLENOL [Concomitant]
     Active Substance: ACETAMINOPHEN
     Dosage: 1000 MILLIGRAM, Q4HR
  15. CELEXA [Concomitant]
     Active Substance: CITALOPRAM HYDROBROMIDE
     Indication: Post-traumatic stress disorder
     Dosage: UNK
  16. METHYLPREDNISOLONE [Concomitant]
     Active Substance: METHYLPREDNISOLONE
     Indication: Premedication
     Dosage: 80 MILLIGRAM
     Route: 042
  17. ACETAMINOPHEN [Concomitant]
     Active Substance: ACETAMINOPHEN
     Indication: Premedication
     Dosage: 650 MILLIGRAM
     Route: 048
  18. DIPHENHYDRAMINE [Concomitant]
     Active Substance: DIPHENHYDRAMINE
     Indication: Premedication
     Dosage: 50 MILLIGRAM
     Route: 048

REACTIONS (13)
  - Lower respiratory tract infection [Unknown]
  - Bladder disorder [Unknown]
  - Post procedural complication [Unknown]
  - Post procedural constipation [Not Recovered/Not Resolved]
  - Procedural vomiting [Not Recovered/Not Resolved]
  - Diarrhoea [Not Recovered/Not Resolved]
  - Abdominal pain [Unknown]
  - Vomiting [Unknown]
  - Influenza [Recovering/Resolving]
  - Nausea [Not Recovered/Not Resolved]
  - Off label use [Unknown]
  - Pharyngitis [Unknown]
  - Sinusitis [Unknown]

NARRATIVE: CASE EVENT DATE: 20161123
